FAERS Safety Report 19002918 (Version 1)
Quarter: 2021Q1

REPORT INFORMATION
  Report Type: Other
  Country: US (occurrence: US)
  Receive Date: 20210312
  Receipt Date: 20210312
  Transmission Date: 20210420
  Serious: Yes (Hospitalization, Other)
  Sender: FDA-Public Use
  Company Number: US-INTERCEPT-PM2021000628

PATIENT
  Age: 84 Year
  Sex: Female
  Weight: 57.14 kg

DRUGS (2)
  1. OCALIVA [Suspect]
     Active Substance: OBETICHOLIC ACID
     Dosage: 10 MILLIGRAM, QD
     Route: 048
     Dates: start: 20180420, end: 202101
  2. OCALIVA [Suspect]
     Active Substance: OBETICHOLIC ACID
     Indication: PRIMARY BILIARY CHOLANGITIS
     Dosage: 5 MILLIGRAM, QD
     Route: 048
     Dates: start: 20171113

REACTIONS (5)
  - Malaise [Unknown]
  - Therapy interrupted [Not Recovered/Not Resolved]
  - Hepatic cancer [Unknown]
  - Palpitations [Unknown]
  - Insurance issue [Unknown]

NARRATIVE: CASE EVENT DATE: 20210220
